FAERS Safety Report 19847526 (Version 1)
Quarter: 2021Q3

REPORT INFORMATION
  Report Type: Spontaneous
  Country: JP (occurrence: JP)
  Receive Date: 20210917
  Receipt Date: 20210917
  Transmission Date: 20211014
  Serious: Yes (Other)
  Sender: FDA-Public Use
  Company Number: JP-BAYER-2021-209181

PATIENT
  Age: 85 Year
  Sex: Male

DRUGS (3)
  1. HYPERLIPEN [Concomitant]
     Dosage: UNK
  2. LEUPLIN [Concomitant]
     Active Substance: LEUPROLIDE ACETATE
     Dosage: UNK
  3. NUBEQA [Suspect]
     Active Substance: DAROLUTAMIDE
     Indication: PROSTATE CANCER
     Dosage: 1200MG DAILY
     Route: 048
     Dates: start: 20210902

REACTIONS (3)
  - Hyperhidrosis [Unknown]
  - Loss of consciousness [Recovered/Resolved]
  - Chills [Unknown]

NARRATIVE: CASE EVENT DATE: 20210902
